FAERS Safety Report 9218076 (Version 1)
Quarter: 2013Q2

REPORT INFORMATION
  Report Type: Spontaneous
  Country: US (occurrence: US)
  Receive Date: 20130408
  Receipt Date: 20130408
  Transmission Date: 20140414
  Serious: Yes (Other)
  Sender: FDA-Public Use
  Company Number: US-GLAXOSMITHKLINE-A1018897A

PATIENT
  Age: 69 Year
  Sex: Male

DRUGS (1)
  1. PAROXETINE [Suspect]
     Indication: PRODUCT USED FOR UNKNOWN INDICATION
     Dosage: 10MG PER DAY
     Dates: start: 1998

REACTIONS (4)
  - Serotonin syndrome [Unknown]
  - Attention deficit/hyperactivity disorder [Unknown]
  - Adverse event [Unknown]
  - Withdrawal syndrome [Unknown]
